FAERS Safety Report 8314859-9 (Version None)
Quarter: 2012Q2

REPORT INFORMATION
  Report Type: 
  Country: None (occurrence: None)
  Receive Date: 20120426
  Receipt Date: 20120124
  Transmission Date: 20120825
  Serious: No
  Sender: FDA-Public Use
  Company Number: US-MYLANLABS-2012S1001720

PATIENT
  Sex: Female

DRUGS (3)
  1. CLONIDINE [Suspect]
     Indication: BLOOD PRESSURE
     Dosage: CHANGED QW
     Route: 062
     Dates: start: 20101101
  2. HYDROCHLOROTHIAZIDE [Concomitant]
     Route: 048
  3. AMLODIPINE [Concomitant]
     Route: 048

REACTIONS (2)
  - DRUG INEFFECTIVE [None]
  - HYPERTENSION [None]
